FAERS Safety Report 11307714 (Version 1)
Quarter: 2015Q3

REPORT INFORMATION
  Report Type: Other
  Country: IN (occurrence: IN)
  Receive Date: 20150724
  Receipt Date: 20150724
  Transmission Date: 20151125
  Serious: No
  Sender: FDA-Public Use
  Company Number: IN-LUPIN PHARMACEUTICALS INC.-2015-01868

PATIENT
  Age: 32 Year
  Sex: Female

DRUGS (1)
  1. MEMANTINE. [Suspect]
     Active Substance: MEMANTINE
     Indication: SCHIZOPHRENIA, UNDIFFERENTIATED TYPE
     Route: 065

REACTIONS (1)
  - Product use issue [Unknown]
